FAERS Safety Report 6215562-1 (Version None)
Quarter: 2009Q2

REPORT INFORMATION
  Report Type: 
  Country: None (occurrence: None)
  Receive Date: 20090605
  Receipt Date: 20090602
  Transmission Date: 20091009
  Serious: Yes (Death, Hospitalization)
  Sender: FDA-Public Use
  Company Number: DE-BRISTOL-MYERS SQUIBB COMPANY-14646764

PATIENT
  Age: 64 Year
  Sex: Female

DRUGS (4)
  1. TAXOL [Suspect]
     Indication: NON-SMALL CELL LUNG CANCER
     Route: 042
  2. CISPLATIN [Suspect]
     Indication: NON-SMALL CELL LUNG CANCER
  3. VINORELBINE [Suspect]
     Indication: NON-SMALL CELL LUNG CANCER
  4. RADIATION THERAPY [Suspect]
     Indication: NON-SMALL CELL LUNG CANCER

REACTIONS (3)
  - GENERAL PHYSICAL HEALTH DETERIORATION [None]
  - PULMONARY EMBOLISM [None]
  - PULMONARY HAEMORRHAGE [None]
